FAERS Safety Report 19255653 (Version 1)
Quarter: 2021Q2

REPORT INFORMATION
  Report Type: Report from Study
  Country: None (occurrence: CL)
  Receive Date: 20210514
  Receipt Date: 20210514
  Transmission Date: 20210717
  Serious: Yes (Death, Hospitalization, Other)
  Sender: FDA-Public Use
  Company Number: CL-ABBVIE-21K-034-3874604-00

PATIENT
  Age: 62 Year
  Sex: Male

DRUGS (1)
  1. HUMIRA [Suspect]
     Active Substance: ADALIMUMAB
     Indication: RHEUMATOID ARTHRITIS
     Route: 058
     Dates: start: 20181010

REACTIONS (5)
  - Cerebrovascular accident [Fatal]
  - Confusional state [Unknown]
  - Pneumonia aspiration [Not Recovered/Not Resolved]
  - Facial paralysis [Unknown]
  - Speech disorder [Unknown]

NARRATIVE: CASE EVENT DATE: 20210420
